FAERS Safety Report 20053648 (Version 1)
Quarter: 2021Q4

REPORT INFORMATION
  Report Type: Spontaneous
  Country: US (occurrence: US)
  Receive Date: 20211110
  Receipt Date: 20211110
  Transmission Date: 20220303
  Serious: No
  Sender: FDA-Public Use
  Company Number: US-PFIZER INC-2021426666

PATIENT
  Age: 66 Year
  Sex: Female
  Weight: 86.18 kg

DRUGS (1)
  1. GABAPENTIN [Suspect]
     Active Substance: GABAPENTIN
     Indication: Fibromyalgia
     Dosage: 50 MG

REACTIONS (2)
  - Headache [Unknown]
  - Off label use [Unknown]
